FAERS Safety Report 20167035 (Version 4)
Quarter: 2022Q1

REPORT INFORMATION
  Report Type: Spontaneous
  Country: JP (occurrence: JP)
  Receive Date: 20211209
  Receipt Date: 20220214
  Transmission Date: 20220424
  Serious: Yes (Death)
  Sender: FDA-Public Use
  Company Number: JP-BAYER-2021A264785

PATIENT
  Age: 70 Year
  Sex: Male
  Weight: 74 kg

DRUGS (9)
  1. NUBEQA [Suspect]
     Active Substance: DAROLUTAMIDE
     Indication: Hormone-refractory prostate cancer
     Dosage: DAILY DOSE 1200 MG
     Route: 048
     Dates: start: 20211111, end: 20211124
  2. NUBEQA [Suspect]
     Active Substance: DAROLUTAMIDE
     Indication: Hospitalisation
  3. NUBEQA [Suspect]
     Active Substance: DAROLUTAMIDE
     Indication: Mobility decreased
  4. FEBUXOSTAT [Concomitant]
     Active Substance: FEBUXOSTAT
     Indication: Hyperuricaemia
     Route: 048
  5. TELMISARTAN [Concomitant]
     Active Substance: TELMISARTAN
     Indication: Hypertension
     Route: 048
  6. NIFEDIPINE [Concomitant]
     Active Substance: NIFEDIPINE
     Indication: Hypertension
     Route: 048
  7. TAMSULOSIN HYDROCHLORIDE [Concomitant]
     Active Substance: TAMSULOSIN HYDROCHLORIDE
     Indication: Benign prostatic hyperplasia
     Route: 048
  8. PRAVASTATIN SODIUM [Concomitant]
     Active Substance: PRAVASTATIN SODIUM
     Indication: Hyperlipidaemia
     Route: 048
  9. DEGARELIX [Concomitant]
     Active Substance: DEGARELIX
     Indication: Prostate cancer
     Dosage: UNK
     Route: 058
     Dates: start: 20201228, end: 20211025

REACTIONS (16)
  - Large intestine perforation [Fatal]
  - Septic shock [Fatal]
  - Disseminated intravascular coagulation [Fatal]
  - Abdominal pain [Fatal]
  - Pyrexia [Fatal]
  - Asthenia [Fatal]
  - Rash [Fatal]
  - Blood pressure decreased [Fatal]
  - Erythema [Fatal]
  - Pain in extremity [Fatal]
  - Oliguria [Fatal]
  - Hypopnoea [Fatal]
  - Depressed level of consciousness [Fatal]
  - Hepatic function abnormal [Fatal]
  - Renal impairment [Fatal]
  - Inflammation [Fatal]

NARRATIVE: CASE EVENT DATE: 20211123
